FAERS Safety Report 11653762 (Version 2)
Quarter: 2015Q4

REPORT INFORMATION
  Report Type: Spontaneous
  Country: FR (occurrence: FR)
  Receive Date: 20151022
  Receipt Date: 20151022
  Transmission Date: 20160304
  Serious: Yes (Other)
  Sender: FDA-Public Use
  Company Number: FR-009507513-1510FRA007226

PATIENT
  Sex: Female

DRUGS (1)
  1. FOSAMAX [Suspect]
     Active Substance: ALENDRONATE SODIUM
     Dosage: 70 MG, QW
     Route: 048
     Dates: start: 200808

REACTIONS (8)
  - Tongue paralysis [Unknown]
  - Hip surgery [Unknown]
  - Salivary hypersecretion [Unknown]
  - Oropharyngeal discomfort [Unknown]
  - Dysphagia [Not Recovered/Not Resolved]
  - Mass excision [Unknown]
  - Throat irritation [Not Recovered/Not Resolved]
  - Pharyngeal disorder [Unknown]

NARRATIVE: CASE EVENT DATE: 2008
